FAERS Safety Report 8592563-X (Version None)
Quarter: 2012Q3

REPORT INFORMATION
  Report Type: 
  Country: None (occurrence: None)
  Receive Date: 20120814
  Receipt Date: 20120807
  Transmission Date: 20120928
  Serious: Yes (Hospitalization)
  Sender: FDA-Public Use
  Company Number: IT-UCBSA-046265

PATIENT
  Age: 79 Year
  Sex: Male

DRUGS (7)
  1. SOTALOL HCL [Concomitant]
  2. COUMADIN [Suspect]
     Indication: CEREBROVASCULAR ACCIDENT
     Dosage: DAILY DOSE 5 MG
     Route: 048
     Dates: start: 20110101, end: 20111004
  3. NITROGLYCERIN [Suspect]
     Indication: CEREBROVASCULAR ACCIDENT
     Route: 062
     Dates: start: 20110101, end: 20111004
  4. FUROSEMIDE [Suspect]
     Indication: HYPERTENSION
     Dosage: DAILY DOSE 25 MG
     Route: 048
     Dates: start: 20110101, end: 20111004
  5. SIMVASTATIN [Suspect]
     Indication: HYPERCHOLESTEROLAEMIA
     Dosage: DAILY DOSE 10 MG
     Route: 048
     Dates: start: 20110101, end: 20111004
  6. LORAZEPAM [Concomitant]
  7. LOSARTAN POTASSIUM [Concomitant]

REACTIONS (1)
  - PRURITUS GENERALISED [None]
